FAERS Safety Report 10095648 (Version 3)
Quarter: 2015Q3

REPORT INFORMATION
  Report Type: Spontaneous
  Country: US (occurrence: US)
  Receive Date: 20140422
  Receipt Date: 20150812
  Transmission Date: 20151125
  Serious: No
  Sender: FDA-Public Use
  Company Number: US-GILEAD-2012-0061851

PATIENT
  Age: 69 Year
  Sex: Female

DRUGS (3)
  1. TYVASO [Concomitant]
     Active Substance: TREPROSTINIL
     Indication: PULMONARY ARTERIAL HYPERTENSION
     Dates: start: 20120806
  2. REVATIO [Concomitant]
     Active Substance: SILDENAFIL CITRATE
     Indication: PULMONARY ARTERIAL HYPERTENSION
     Dosage: 20 MG, TID
     Dates: start: 20120914
  3. LETAIRIS [Suspect]
     Active Substance: AMBRISENTAN
     Indication: PULMONARY ARTERIAL HYPERTENSION
     Dosage: 5 MG, QD
     Route: 048
     Dates: start: 20120914

REACTIONS (15)
  - Unevaluable event [Unknown]
  - Pyrexia [Unknown]
  - Unevaluable event [Unknown]
  - Peripheral swelling [Unknown]
  - Pain [Unknown]
  - Myalgia [Unknown]
  - Hypotension [Unknown]
  - Decreased appetite [Unknown]
  - Influenza like illness [Unknown]
  - Swelling [Unknown]
  - Pain in extremity [Unknown]
  - Weight decreased [Unknown]
  - Palpitations [Unknown]
  - Chills [Unknown]
  - Fluid retention [Unknown]

NARRATIVE: CASE EVENT DATE: 201209
